FAERS Safety Report 4505082-4 (Version None)
Quarter: 2004Q4

REPORT INFORMATION
  Report Type: 
  Country: None (occurrence: None)
  Receive Date: 20041117
  Receipt Date: 20041117
  Transmission Date: 20050328
  Serious: Yes (Hospitalization)
  Sender: FDA-Public Use
  Company Number: None

PATIENT
  Age: 57 Year
  Sex: Male

DRUGS (14)
  1. LISINOPRIL [Suspect]
     Indication: HYPERTENSION
     Dosage: 40 MG QD
     Dates: start: 19970101
  2. SPIRONOLACTONE [Suspect]
     Indication: DIURETIC THERAPY
     Dosage: 25 MG TID
     Dates: start: 20020401
  3. NPH INSULIN [Concomitant]
  4. DSS [Concomitant]
  5. ZOCOR [Concomitant]
  6. FOLIC ACID [Concomitant]
  7. ISOSORBIDE [Concomitant]
  8. METOPROLOL [Concomitant]
  9. LACTULOSE [Concomitant]
  10. NTC [Concomitant]
  11. DIGOXIN [Concomitant]
  12. ASPIRIN [Concomitant]
  13. KCL TAB [Concomitant]
  14. CITALOPRAM [Concomitant]

REACTIONS (1)
  - HYPERKALAEMIA [None]
